FAERS Safety Report 9557923 (Version 2)
Quarter: 2013Q4

REPORT INFORMATION
  Report Type: Spontaneous
  Country: DE (occurrence: DE)
  Receive Date: 20130926
  Receipt Date: 20131211
  Transmission Date: 20140711
  Serious: Yes (Hospitalization)
  Sender: FDA-Public Use
  Company Number: DE-BRISTOL-MYERS SQUIBB COMPANY-19438191

PATIENT
  Age: 72 Year
  Sex: Male
  Weight: 76.4 kg

DRUGS (1)
  1. ELIQUIS [Suspect]
     Indication: CEREBRAL INFARCTION
     Dates: start: 201305, end: 20130828

REACTIONS (1)
  - Cerebral infarction [Recovered/Resolved]
